FAERS Safety Report 9203533 (Version 3)
Quarter: 2013Q2

REPORT INFORMATION
  Report Type: Spontaneous
  Country: US (occurrence: US)
  Receive Date: 20130402
  Receipt Date: 20130502
  Transmission Date: 20140414
  Serious: Yes (Other)
  Sender: FDA-Public Use
  Company Number: US-PFIZER INC-2013103401

PATIENT
  Age: 49 Year
  Sex: Female

DRUGS (6)
  1. EFFEXOR XR [Suspect]
     Indication: HOT FLUSH
     Dosage: 75 MG, 1X/DAY
     Route: 048
     Dates: start: 20130325, end: 20130415
  2. AUGMENTIN [Concomitant]
     Dosage: 875MG-125MG, 1 TAB EVERY 12 HOURS
     Route: 048
  3. NORCO [Concomitant]
     Indication: PAIN
     Dosage: 10MG-235MG, 1 TAB EVERY 4-6 HOURS AS NEEDED
     Route: 048
  4. RANITIDINE HYDROCHLORIDE [Concomitant]
     Dosage: 300 MG, 1X/DAY, AT BED TIME
     Route: 048
  5. IBUPROFEN PM [Concomitant]
     Dosage: 200MG-38MG, 1X/DAY
  6. IBUPROFEN [Concomitant]
     Dosage: 800 MG, 3X/DAY
     Route: 048

REACTIONS (4)
  - Neoplasm malignant [Unknown]
  - Malaise [Unknown]
  - Feeling abnormal [Unknown]
  - Off label use [Recovered/Resolved]
